FAERS Safety Report 22287288 (Version 1)
Quarter: 2023Q2

REPORT INFORMATION
  Report Type: Spontaneous
  Country: GB (occurrence: GB)
  Receive Date: 20230505
  Receipt Date: 20230505
  Transmission Date: 20230722
  Serious: Yes (Other)
  Sender: FDA-Public Use
  Company Number: GB-AMGEN-GBRSP2023020215

PATIENT
  Sex: Female

DRUGS (1)
  1. ADALIMUMAB [Suspect]
     Active Substance: ADALIMUMAB
     Indication: Colitis ulcerative
     Dosage: 40 MILLIGRAM, Q2WK
     Route: 058

REACTIONS (17)
  - Autoimmune disorder [Unknown]
  - Bedridden [Recovered/Resolved]
  - Eating disorder [Unknown]
  - Tooth disorder [Unknown]
  - Blood zinc decreased [Unknown]
  - Decreased appetite [Unknown]
  - Blood calcium decreased [Unknown]
  - Emotional distress [Unknown]
  - Pain [Unknown]
  - Product dose omission issue [Unknown]
  - Asthenia [Unknown]
  - Weight decreased [Unknown]
  - Diarrhoea [Not Recovered/Not Resolved]
  - Dyspepsia [Unknown]
  - Alopecia [Unknown]
  - Oral candidiasis [Unknown]
  - Oral herpes [Unknown]
